FAERS Safety Report 21471275 (Version 1)
Quarter: 2022Q4

REPORT INFORMATION
  Report Type: Spontaneous
  Country: US (occurrence: None)
  Receive Date: 20221017
  Receipt Date: 20221017
  Transmission Date: 20230113
  Serious: No
  Sender: FDA-Public Use
  Company Number: None

PATIENT
  Age: 38 Year
  Sex: Female
  Weight: 63.9 kg

DRUGS (4)
  1. BUDESONIDE [Suspect]
     Active Substance: BUDESONIDE
     Indication: Sinuplasty
     Dosage: FREQUENCY : DAILY;?
     Route: 045
     Dates: start: 20220718, end: 20220801
  2. ALBUTEROL [Concomitant]
     Active Substance: ALBUTEROL
  3. Mirena IUD [Concomitant]
  4. Nutrafol vitamins [Concomitant]

REACTIONS (1)
  - Anosmia [None]

NARRATIVE: CASE EVENT DATE: 20220802
